FAERS Safety Report 5582671-X (Version None)
Quarter: 2008Q1

REPORT INFORMATION
  Report Type: 
  Country: None (occurrence: None)
  Receive Date: 20080107
  Receipt Date: 20071231
  Transmission Date: 20080703
  Serious: Yes (Other)
  Sender: FDA-Public Use
  Company Number: PHBS2007IL21695

PATIENT

DRUGS (2)
  1. MYFORTIC [Suspect]
     Indication: TRANSPLANT
     Dosage: 180 MG, BID
     Route: 048
  2. MYFORTIC [Suspect]
     Dosage: 360 MG, UNK
     Route: 048

REACTIONS (5)
  - ARTHRALGIA [None]
  - PAIN [None]
  - RASH [None]
  - RASH PUSTULAR [None]
  - SKIN NODULE [None]
